FAERS Safety Report 6442326-6 (Version None)
Quarter: 2009Q4

REPORT INFORMATION
  Report Type: 
  Country: None (occurrence: None)
  Receive Date: 20091112
  Receipt Date: 20091103
  Transmission Date: 20100525
  Serious: Yes (Disabling)
  Sender: FDA-Public Use
  Company Number: ADR50042009

PATIENT
  Age: 60 Year
  Sex: Female

DRUGS (1)
  1. ALENDRONIC ACID (MFR: UNKNOWN) [Suspect]

REACTIONS (2)
  - EYE PAIN [None]
  - OCULAR HYPERAEMIA [None]
